FAERS Safety Report 20365486 (Version 4)
Quarter: 2023Q2

REPORT INFORMATION
  Report Type: Spontaneous
  Country: CZ (occurrence: CZ)
  Receive Date: 20220122
  Receipt Date: 20230424
  Transmission Date: 20230722
  Serious: Yes (Other)
  Sender: FDA-Public Use
  Company Number: CZ-NOVARTISPH-NVSC2022CZ007223

PATIENT
  Age: 1 Year
  Sex: Male

DRUGS (7)
  1. ZOLGENSMA [Suspect]
     Active Substance: ONASEMNOGENE ABEPARVOVEC-XIOI
     Indication: Spinal muscular atrophy
     Dosage: 55 ML
     Route: 065
     Dates: start: 20210930
  2. VITAMIN D3 [Concomitant]
     Active Substance: CHOLECALCIFEROL
     Indication: Product used for unknown indication
     Dosage: (0-2-0 DROPS)
     Route: 048
  3. OMEPRAZOLE [Concomitant]
     Active Substance: OMEPRAZOLE
     Indication: Product used for unknown indication
     Dosage: 5 ML(5ML-0-0)
     Route: 048
     Dates: start: 20211029, end: 202112
  4. NUSINERSEN [Concomitant]
     Active Substance: NUSINERSEN
     Indication: Product used for unknown indication
     Dosage: 12 MG  (12 MG I.T.)
     Route: 065
     Dates: start: 20210702
  5. NUSINERSEN [Concomitant]
     Active Substance: NUSINERSEN
     Dosage: 12 MG  (12 MG I.T.)
     Route: 065
     Dates: start: 20210716
  6. NUSINERSEN [Concomitant]
     Active Substance: NUSINERSEN
     Dosage: 12 MG  (12 MG I.T.)
     Route: 065
     Dates: start: 20210730
  7. NUSINERSEN [Concomitant]
     Active Substance: NUSINERSEN
     Dosage: 12 MG  (12 MG I.T.)
     Route: 065
     Dates: start: 20210910

REACTIONS (6)
  - Thrombocytopenia [Recovered/Resolved]
  - Liver disorder [Recovered/Resolved]
  - Faeces pale [Recovered/Resolved]
  - Coagulopathy [Recovered/Resolved]
  - Vomiting [Recovered/Resolved]
  - Pyrexia [Recovered/Resolved]

NARRATIVE: CASE EVENT DATE: 20211003
